FAERS Safety Report 8212791-2 (Version None)
Quarter: 2012Q1

REPORT INFORMATION
  Report Type: 
  Country: None (occurrence: None)
  Receive Date: 20120228
  Receipt Date: 20111206
  Transmission Date: 20120608
  Serious: Yes (Other)
  Sender: FDA-Public Use
  Company Number: RB-35271-2011

PATIENT
  Age: 12 Month
  Sex: Female

DRUGS (1)
  1. SUBOXONE [Suspect]
     Indication: PRODUCT USED FOR UNKNOWN INDICATION
     Dosage: 8 MG, ONCE ORAL
     Route: 048
     Dates: start: 20111204, end: 20111204

REACTIONS (2)
  - ADVERSE DRUG REACTION [None]
  - ACCIDENTAL DRUG INTAKE BY CHILD [None]
